FAERS Safety Report 16066743 (Version 1)
Quarter: 2019Q1

REPORT INFORMATION
  Report Type: Report from Study
  Country: US (occurrence: US)
  Receive Date: 20190313
  Receipt Date: 20190313
  Transmission Date: 20190418
  Serious: Yes (Hospitalization, Other)
  Sender: FDA-Public Use
  Company Number: US-PFIZER INC-2019104425

PATIENT
  Age: 90 Year
  Sex: Female

DRUGS (1)
  1. METOPROLOL TARTRATE. [Suspect]
     Active Substance: METOPROLOL TARTRATE
     Dosage: 150 MG, UNK
     Route: 048

REACTIONS (5)
  - Overdose [Unknown]
  - Hypotension [Unknown]
  - Hypoxia [Unknown]
  - Bradycardia [Unknown]
  - Cardiac failure acute [Unknown]
